FAERS Safety Report 8385879 (Version 4)
Quarter: 2012Q4

REPORT INFORMATION
  Report Type: 
  Country: US (occurrence: US)
  Receive Date: 20120202
  Receipt Date: 20121126
  Transmission Date: 20130627
  Serious: Yes (Other)
  Sender: FDA-Public Use
  Company Number: PHEH2012US002376

PATIENT
  Age: 35 Year
  Sex: Female
  Weight: 58.96 kg

DRUGS (4)
  1. GILENYA [Suspect]
     Indication: MULTIPLE SCLEROSIS
     Dosage: 0.5 mg, QD
     Route: 048
     Dates: start: 20120103
  2. VITAMIN D [Concomitant]
  3. MULTIVITAMIN [Concomitant]
  4. MOTRIN [Concomitant]
     Dosage: 600 mg, UNK

REACTIONS (3)
  - Hand fracture [Unknown]
  - Fatigue [Recovering/Resolving]
  - Headache [Unknown]
